FAERS Safety Report 25413743 (Version 1)
Quarter: 2025Q2

REPORT INFORMATION
  Report Type: Spontaneous
  Country: US (occurrence: None)
  Receive Date: 20250607
  Receipt Date: 20250607
  Transmission Date: 20250717
  Serious: Yes (Life-Threatening, Hospitalization)
  Sender: FDA-CTU
  Company Number: None

PATIENT
  Age: 55 Year
  Sex: Female
  Weight: 91.35 kg

DRUGS (11)
  1. ZEPBOUND [Suspect]
     Active Substance: TIRZEPATIDE
     Indication: Weight decreased
     Route: 050
     Dates: start: 20241002, end: 20250505
  2. Duloxetine Hcl Dr (Cymbalta) [Concomitant]
  3. Trazodone (Desyrel) [Concomitant]
  4. ARMOUR THYROID [Concomitant]
     Active Substance: THYROID, PORCINE
  5. Fluticasone Propionate Nasal Spray (Flonase) [Concomitant]
  6. DEXILANT [Concomitant]
     Active Substance: DEXLANSOPRAZOLE
  7. COLESTIPOL HYDROCHLORIDE [Concomitant]
     Active Substance: COLESTIPOL HYDROCHLORIDE
  8. HYDROCHLOROTHIAZIDE [Concomitant]
     Active Substance: HYDROCHLOROTHIAZIDE
  9. Valaclovir Hcl (Valtrex) [Concomitant]
  10. LOSARTAN POTASSIUM [Concomitant]
     Active Substance: LOSARTAN POTASSIUM
  11. Metoprolol Succ ER (Toprol Xl) [Concomitant]

REACTIONS (6)
  - Constipation [None]
  - Diarrhoea [None]
  - Tremor [None]
  - Appendicitis perforated [None]
  - Procedural complication [None]
  - Impaired gastric emptying [None]

NARRATIVE: CASE EVENT DATE: 20250512
